FAERS Safety Report 7153346-0 (Version None)
Quarter: 2010Q4

REPORT INFORMATION
  Report Type: 
  Country: None (occurrence: None)
  Receive Date: 20101213
  Receipt Date: 20101208
  Transmission Date: 20110411
  Serious: No
  Sender: FDA-Public Use
  Company Number: BR-ROCHE-747062

PATIENT
  Sex: Female

DRUGS (1)
  1. ROACUTAN [Suspect]
     Route: 048
     Dates: start: 20101101

REACTIONS (2)
  - NO ADVERSE EVENT [None]
  - PREGNANCY [None]
